FAERS Safety Report 6090994-3 (Version None)
Quarter: 2009Q1

REPORT INFORMATION
  Report Type: 
  Country: None (occurrence: None)
  Receive Date: 20090218
  Receipt Date: 20090218
  Transmission Date: 20090719
  Serious: Yes (Life-Threatening, Hospitalization)
  Sender: FDA-Public Use
  Company Number: None

PATIENT
  Age: 45 Year
  Sex: Male
  Weight: 101.6 kg

DRUGS (7)
  1. PHENOBABITAL 60 MG UNKNOWN [Suspect]
     Indication: CONVULSION
     Dosage: 60 MG DAILY PO UNKNOWN - } THAN 5 YEARS
     Route: 048
  2. DIVALPROEX SODIUM [Suspect]
     Indication: CONVULSION
     Dosage: 2 GRAMS HS PO UNKNOWN - } THAN 5 YEARS
     Route: 048
  3. GABAPENTIN [Concomitant]
  4. KEPPRA [Concomitant]
  5. ZYPREXA [Concomitant]
  6. BENZTROPINE [Concomitant]
  7. HYDROCODONE BITARTRATE + ACETAMINOPHEN [Concomitant]

REACTIONS (2)
  - HALLUCINATION, AUDITORY [None]
  - SUICIDAL IDEATION [None]
